FAERS Safety Report 7725070 (Version 6)
Quarter: 2013Q2

REPORT INFORMATION
  Report Type: Report from Study
  Country: US (occurrence: US)
  Receive Date: 20101221
  Receipt Date: 20130423
  Transmission Date: 20140414
  Serious: Yes (Other)
  Sender: FDA-Public Use
  Company Number: US-RB-019531-10

PATIENT
  Age: 32 Year
  Sex: Female
  Weight: 81 kg

DRUGS (4)
  1. SUBOXONE FILM [Suspect]
     Indication: DRUG DEPENDENCE
     Dosage: SUBLINGUAL FILM
     Route: 060
     Dates: start: 201012, end: 201105
  2. SUBOXONE FILM [Suspect]
     Dosage: SUBOXONE FILM; VARIOUS DOSES
     Route: 060
     Dates: start: 201012, end: 201105
  3. SUBOXONE TABLET [Suspect]
     Indication: PRODUCT USED FOR UNKNOWN INDICATION
     Dosage: DOSING INFORMATION UNKNOWN
     Route: 065
  4. PREDNISONE [Suspect]
     Indication: SWELLING
     Dosage: DOSING DETAILS UNKNOWN
     Route: 048

REACTIONS (24)
  - Thyroid mass [Not Recovered/Not Resolved]
  - Hypoaesthesia [Recovered/Resolved]
  - Paraesthesia [Recovered/Resolved]
  - Dry skin [Recovered/Resolved]
  - Muscle rigidity [Not Recovered/Not Resolved]
  - Vision blurred [Recovered/Resolved]
  - Influenza like illness [Recovered/Resolved]
  - Herpes virus infection [Not Recovered/Not Resolved]
  - Swelling face [Not Recovered/Not Resolved]
  - Arthropod bite [Recovered/Resolved]
  - Muscle swelling [Not Recovered/Not Resolved]
  - Dyspnoea [Not Recovered/Not Resolved]
  - Underdose [Recovered/Resolved]
  - Substance abuse [Recovered/Resolved]
  - Cyst [Recovered/Resolved]
  - Skin tightness [Recovered/Resolved]
  - Hypertension [Recovered/Resolved]
  - Oedema peripheral [Recovered/Resolved]
  - Wrong technique in drug usage process [Recovered/Resolved]
  - Overdose [Recovered/Resolved]
  - Back injury [Recovered/Resolved]
  - Weight increased [Recovered/Resolved]
  - Intervertebral disc protrusion [Unknown]
  - Drug abuse [Recovered/Resolved]
